FAERS Safety Report 20668521 (Version 6)
Quarter: 2022Q2

REPORT INFORMATION
  Report Type: Report from Study
  Country: ES (occurrence: None)
  Receive Date: 20220404
  Receipt Date: 20220606
  Transmission Date: 20220721
  Serious: Yes (Hospitalization)
  Sender: FDA-Public Use
  Company Number: ES-ROCHE-3061258

PATIENT
  Age: 62 Year
  Sex: Male
  Weight: 121.3 kg

DRUGS (36)
  1. GLOFITAMAB [Suspect]
     Active Substance: GLOFITAMAB
     Indication: B-cell lymphoma
     Dosage: MOST RECENT DOSE OF 2.5 MG PRIOR TO AE: 09/MAR/2022 10:55 AM TO 6:55 PM?:MOST RECENT DOSE OF 10 MG P
     Route: 042
     Dates: start: 20220309
  2. OBINUTUZUMAB [Suspect]
     Active Substance: OBINUTUZUMAB
     Indication: B-cell lymphoma
     Dosage: MOST RECENT DOSE OF OBINUTUZUMAB (1000 MG/10 ML) PRIOR TO AE/SAE WAS RECEIVED ON 02/MAR/2022.
     Route: 042
     Dates: start: 20220302
  3. POLATUZUMAB VEDOTIN [Suspect]
     Active Substance: POLATUZUMAB VEDOTIN
     Indication: B-cell lymphoma
     Dosage: MOST RECENT DOSE OF POLATUZUMAB (217.8 MG/100 ML) PRIOR TO AE/SAE WAS RECEIVED ON 03/MAR/2022
     Route: 042
     Dates: start: 20220303
  4. PIPERACILLIN SODIUM\TAZOBACTAM SODIUM [Concomitant]
     Active Substance: PIPERACILLIN SODIUM\TAZOBACTAM SODIUM
     Indication: Cytokine release syndrome
     Dates: start: 20220311, end: 20220314
  5. FENTANYL [Concomitant]
     Active Substance: FENTANYL
     Dates: start: 20220301
  6. HIBOR [Concomitant]
     Indication: Jugular vein thrombosis
     Dates: start: 20220315
  7. TAZOBACTAM [Concomitant]
     Active Substance: TAZOBACTAM
     Indication: Cytokine release syndrome
     Dates: start: 20220324
  8. POLARAMINE [Concomitant]
     Active Substance: DEXCHLORPHENIRAMINE MALEATE
     Indication: Premedication
     Route: 042
     Dates: start: 20220302, end: 20220302
  9. POLARAMINE [Concomitant]
     Active Substance: DEXCHLORPHENIRAMINE MALEATE
     Route: 042
     Dates: start: 20220303, end: 20220303
  10. POLARAMINE [Concomitant]
     Active Substance: DEXCHLORPHENIRAMINE MALEATE
     Route: 042
     Dates: start: 20220323, end: 20220323
  11. POLARAMINE [Concomitant]
     Active Substance: DEXCHLORPHENIRAMINE MALEATE
     Route: 042
     Dates: start: 20220309, end: 20220309
  12. POLARAMINE [Concomitant]
     Active Substance: DEXCHLORPHENIRAMINE MALEATE
     Route: 042
     Dates: start: 20220405, end: 20220405
  13. ACETAMINOPHEN [Concomitant]
     Active Substance: ACETAMINOPHEN
     Indication: Premedication
     Route: 042
     Dates: start: 20220323, end: 20220323
  14. ACETAMINOPHEN [Concomitant]
     Active Substance: ACETAMINOPHEN
     Route: 042
     Dates: start: 20220309, end: 20220309
  15. ACETAMINOPHEN [Concomitant]
     Active Substance: ACETAMINOPHEN
     Route: 042
     Dates: start: 20220303, end: 20220303
  16. ACETAMINOPHEN [Concomitant]
     Active Substance: ACETAMINOPHEN
     Route: 042
     Dates: start: 20220302, end: 20220302
  17. ACETAMINOPHEN [Concomitant]
     Active Substance: ACETAMINOPHEN
     Route: 042
     Dates: start: 20220405, end: 20220405
  18. LEVOFLOXACIN [Concomitant]
     Active Substance: LEVOFLOXACIN
     Indication: Prophylaxis
     Dates: start: 20220314
  19. FILGRASTIM [Concomitant]
     Active Substance: FILGRASTIM
     Dates: start: 20220314
  20. XARELTO [Concomitant]
     Active Substance: RIVAROXABAN
     Dates: start: 20210920
  21. BISOPROLOL [Concomitant]
     Active Substance: BISOPROLOL
     Dates: start: 20210219
  22. ENTRESTO [Concomitant]
     Active Substance: SACUBITRIL\VALSARTAN
     Indication: Hypertension
     Dates: start: 20210325, end: 20220311
  23. EPLERENONE [Concomitant]
     Active Substance: EPLERENONE
     Indication: Hypertension
  24. FAMOTIDINA [Concomitant]
     Indication: Gastrointestinal disorder prophylaxis
     Dates: start: 20220304
  25. ENOXAPARIN [Concomitant]
     Active Substance: ENOXAPARIN
     Dates: start: 20220301
  26. ACYCLOVIR [Concomitant]
     Active Substance: ACYCLOVIR
     Dates: start: 20211119
  27. GRANULOCYTE COLONY-STIMULATING FACTOR NOS [Concomitant]
     Active Substance: GRANULOCYTE COLONY-STIMULATING FACTOR NOS
     Indication: Neutropenia
     Dates: start: 20220314, end: 20220315
  28. OMEPRAZOLE [Concomitant]
     Active Substance: OMEPRAZOLE
     Indication: Gastrointestinal disorder prophylaxis
     Dates: start: 20210219, end: 20220301
  29. DEXKETOPROFEN TROMETAMOL [Concomitant]
     Active Substance: DEXKETOPROFEN TROMETAMOL
     Indication: Prophylaxis
     Dates: start: 20220130
  30. ENTRESTO [Concomitant]
     Active Substance: SACUBITRIL\VALSARTAN
     Indication: Hypertension
  31. DEXAMETHASONE [Concomitant]
     Active Substance: DEXAMETHASONE
     Indication: Premedication
     Dates: start: 20220301
  32. DEXAMETHASONE [Concomitant]
     Active Substance: DEXAMETHASONE
     Route: 042
     Dates: start: 20220303, end: 20220303
  33. DEXAMETHASONE [Concomitant]
     Active Substance: DEXAMETHASONE
     Route: 042
     Dates: start: 20220309, end: 20220309
  34. DEXAMETHASONE [Concomitant]
     Active Substance: DEXAMETHASONE
     Route: 042
     Dates: start: 20220302, end: 20220302
  35. DEXAMETHASONE [Concomitant]
     Active Substance: DEXAMETHASONE
     Route: 042
     Dates: start: 20220323, end: 20220323
  36. VITAMIN K [Concomitant]
     Active Substance: PHYTONADIONE
     Indication: International normalised ratio increased
     Dates: start: 20220325

REACTIONS (1)
  - Tumour flare [Recovered/Resolved]

NARRATIVE: CASE EVENT DATE: 20220311
